FAERS Safety Report 8790793 (Version 1)
Quarter: 2012Q4

REPORT INFORMATION
  Report Type: Spontaneous
  Country: GB (occurrence: None)
  Receive Date: 20120907
  Receipt Date: 20120907
  Transmission Date: 20130627
  Serious: Yes (Other)
  Sender: FDA-Public Use
  Company Number: 2012-01309

PATIENT
  Age: 52 Year
  Sex: Male

DRUGS (2)
  1. LISINOPRIL (UNKNOWN) [Suspect]
     Indication: HYPERTENSION
     Dosage: (10 mg, 1 in 1 D)
     Route: 048
     Dates: start: 20120731, end: 20120801
  2. AMLODIPINE (UNKNOWN) [Concomitant]

REACTIONS (1)
  - Hallucination [None]
